FAERS Safety Report 8153449-8 (Version None)
Quarter: 2012Q1

REPORT INFORMATION
  Report Type: 
  Country: None (occurrence: None)
  Receive Date: 20120216
  Receipt Date: 20120216
  Transmission Date: 20120608
  Serious: Yes (Hospitalization)
  Sender: FDA-Public Use
  Company Number: None

PATIENT
  Sex: Female
  Weight: 86.6 kg

DRUGS (1)
  1. ZOMETA [Suspect]
     Dosage: 4MG IV ONCE A MONTH
     Route: 042
     Dates: start: 20110906

REACTIONS (1)
  - OSTEONECROSIS OF JAW [None]
